FAERS Safety Report 5835818-1 (Version None)
Quarter: 2008Q3

REPORT INFORMATION
  Report Type: 
  Country: None (occurrence: None)
  Receive Date: 20080806
  Receipt Date: 20080804
  Transmission Date: 20090109
  Serious: Yes (Hospitalization)
  Sender: FDA-Public Use
  Company Number: US-BOEHRINGER INGELHEIM GMBH, GERMANY-2008-BP-12249BP

PATIENT
  Sex: Female

DRUGS (18)
  1. COMBIVENT [Suspect]
     Indication: CHRONIC OBSTRUCTIVE PULMONARY DISEASE
     Route: 055
     Dates: start: 19930101
  2. COMBIVENT [Suspect]
     Indication: EMPHYSEMA
  3. SPIRIVA [Suspect]
     Indication: CHRONIC OBSTRUCTIVE PULMONARY DISEASE
  4. ACEON [Concomitant]
  5. LANOXIN [Concomitant]
  6. TOPROL-XL [Concomitant]
     Indication: HYPERTENSION
  7. PLAVIX [Concomitant]
     Indication: BLOOD CHOLESTEROL INCREASED
  8. SYNTHROID [Concomitant]
     Indication: HYPOTHYROIDISM
  9. PAXIL [Concomitant]
     Indication: DEPRESSION
  10. REMERON [Concomitant]
  11. ULTRACET [Concomitant]
     Indication: PAIN
  12. DURAGESIC-100 [Concomitant]
     Indication: PAIN
  13. XANAX [Concomitant]
  14. NITROSTAT [Concomitant]
  15. DARVOCET [Concomitant]
     Indication: PAIN
  16. OXYGEN [Concomitant]
  17. QUININE [Concomitant]
  18. NITROGLYCERIN [Concomitant]

REACTIONS (4)
  - CARDIAC DISORDER [None]
  - LUNG NEOPLASM MALIGNANT [None]
  - PNEUMONIA [None]
  - STOMACH DISCOMFORT [None]
